FAERS Safety Report 5474439-X (Version None)
Quarter: 2007Q3

REPORT INFORMATION
  Report Type: 
  Country: None (occurrence: None)
  Receive Date: 20070928
  Receipt Date: 20070918
  Transmission Date: 20080115
  Serious: Yes (Death)
  Sender: FDA-Public Use
  Company Number: 6038177

PATIENT
  Age: 95 Year

DRUGS (4)
  1. BISOPROLOL FUMARATE [Suspect]
     Indication: DRUG USE FOR UNKNOWN INDICATION
     Dosage: 2.5 MG (1.25 MG TWICE DAILY) ORAL
     Route: 048
  2. AMIODARONE HCL [Suspect]
     Dosage: 100 MG (100 MG, 1 IN 1 D);
  3. TEMAZEPAM [Concomitant]
  4. ASPIRIN [Concomitant]

REACTIONS (1)
  - DRUG INTERACTION [None]
